FAERS Safety Report 19922093 (Version 1)
Quarter: 2021Q4

REPORT INFORMATION
  Report Type: Spontaneous
  Country: US (occurrence: US)
  Receive Date: 20211004
  Receipt Date: 20211004
  Transmission Date: 20220303
  Serious: No
  Sender: FDA-Public Use
  Company Number: None

PATIENT
  Age: 72 Year
  Sex: Male

DRUGS (2)
  1. DEVICE [Suspect]
     Active Substance: DEVICE
     Indication: Pulmonary arterial hypertension
     Dosage: ?          OTHER DOSE:27.6NG/KG/MIN;OTHER FREQUENCY:CONTINUOUS;
     Route: 058
     Dates: start: 202012
  2. REMODULIN [Suspect]
     Active Substance: TREPROSTINIL
     Indication: Pulmonary arterial hypertension
     Dosage: DOSE AMOUNT: 27.6MG/KG/MIN?FREQUENCY: CONTINUOUS
     Route: 058
     Dates: start: 202012

REACTIONS (3)
  - Dyspnoea [None]
  - Palpitations [None]
  - Device malfunction [None]

NARRATIVE: CASE EVENT DATE: 20210410
